FAERS Safety Report 10311784 (Version 1)
Quarter: 2014Q3

REPORT INFORMATION
  Report Type: Report from Study
  Country: JP (occurrence: JP)
  Receive Date: 20140717
  Receipt Date: 20140717
  Transmission Date: 20150326
  Serious: Yes (Other)
  Sender: FDA-Public Use
  Company Number: JP-BRISTOL-MYERS SQUIBB COMPANY-21209002

PATIENT
  Age: 30 Year
  Sex: Female

DRUGS (1)
  1. METRELEPTIN [Suspect]
     Active Substance: INVESTIGATIONAL PRODUCT
     Dosage: INJ
     Route: 058

REACTIONS (1)
  - Basedow^s disease [Unknown]
